FAERS Safety Report 18511733 (Version 1)
Quarter: 2020Q4

REPORT INFORMATION
  Report Type: Report from Study
  Country: US (occurrence: US)
  Receive Date: 20201117
  Receipt Date: 20201117
  Transmission Date: 20210114
  Serious: Yes (Life-Threatening, Hospitalization, Other)
  Sender: FDA-Public Use
  Company Number: US-B.I. PHARMACEUTICALS,INC./RIDGEFIELD-2020-BI-061655

PATIENT
  Age: 14 Year
  Sex: Female

DRUGS (3)
  1. ATROVENT [Suspect]
     Active Substance: IPRATROPIUM BROMIDE
     Indication: HYPOXIA
     Dosage: 3 NEBULIZED TREATMENTS
     Route: 065
  2. ALBUTEROL [SALBUTAMOL] [Concomitant]
     Active Substance: ALBUTEROL
     Indication: COUGH
  3. ALBUTEROL [SALBUTAMOL] [Concomitant]
     Active Substance: ALBUTEROL
     Indication: DYSPNOEA
     Dosage: METERED DOSE INHALER (MDI); 3 NEBULIZED TREATMENTS
     Route: 065

REACTIONS (4)
  - Respiratory failure [Recovered/Resolved]
  - Respiratory distress [Unknown]
  - Asthma [Unknown]
  - Respiratory acidosis [Unknown]
